FAERS Safety Report 4823380-1 (Version None)
Quarter: 2005Q4

REPORT INFORMATION
  Report Type: 
  Country: None (occurrence: None)
  Receive Date: 20051107
  Receipt Date: 20051101
  Transmission Date: 20060501
  Serious: Yes (Life-Threatening, Hospitalization)
  Sender: FDA-Public Use
  Company Number: GBWYE105902NOV05

PATIENT
  Sex: Female

DRUGS (6)
  1. EFFEXOR [Suspect]
     Dosage: SEE IMAGE
     Route: 048
     Dates: end: 20051014
  2. CO-AMILOFRUSE (AMILORIDE HYDROCHLORIDE/FUROSEMIDE) [Concomitant]
  3. QUETIAPINE FUMARATE [Concomitant]
  4. ENOXAPARIN SODIUM [Suspect]
     Dosage: 75 MG X1 PER DAY
     Route: 048
     Dates: end: 20051014
  5. GALANTAMINE HYDROBROMIDE [Suspect]
     Dosage: FREQUENCY TWICE DAILY
     Route: 048
     Dates: end: 20051014
  6. ASPIRIN [Suspect]
     Dosage: 75 MG 1 X PER ADY
     Route: 048
     Dates: end: 20051014

REACTIONS (2)
  - GASTRITIS HAEMORRHAGIC [None]
  - HAEMATEMESIS [None]
